FAERS Safety Report 7821936-5 (Version None)
Quarter: 2011Q4

REPORT INFORMATION
  Report Type: 
  Country: None (occurrence: None)
  Receive Date: 20111018
  Receipt Date: 20110209
  Transmission Date: 20120403
  Serious: No
  Sender: FDA-Public Use
  Company Number: US-ASTRAZENECA-2011SE07854

PATIENT
  Age: 26544 Day
  Sex: Female

DRUGS (3)
  1. SYMBICORT [Suspect]
     Indication: CHRONIC OBSTRUCTIVE PULMONARY DISEASE
     Dosage: TWICE A DAY
     Route: 055
     Dates: start: 20110208
  2. SYMBICORT [Suspect]
     Indication: ASTHMA
     Dosage: TWICE A DAY
     Route: 055
     Dates: start: 20110208
  3. BLOOD PRESSURE MEDICATION [Concomitant]
     Indication: HYPERTENSION

REACTIONS (3)
  - VOMITING [None]
  - ABDOMINAL DISCOMFORT [None]
  - DECREASED APPETITE [None]
